FAERS Safety Report 22808844 (Version 2)
Quarter: 2024Q1

REPORT INFORMATION
  Report Type: Spontaneous
  Country: US (occurrence: US)
  Receive Date: 20230810
  Receipt Date: 20240123
  Transmission Date: 20240410
  Serious: No
  Sender: FDA-Public Use
  Company Number: US-VERTEX PHARMACEUTICALS-2023-011717

PATIENT
  Sex: Female

DRUGS (1)
  1. KALYDECO [Suspect]
     Active Substance: IVACAFTOR
     Indication: Cystic fibrosis
     Dosage: 150MG IVACAFTOR
     Route: 048
     Dates: start: 2014

REACTIONS (4)
  - Exposure during pregnancy [Unknown]
  - Gestational diabetes [Unknown]
  - Hypothyroidism [Unknown]
  - Placental calcification [Unknown]

NARRATIVE: CASE EVENT DATE: 20160101
